FAERS Safety Report 9621237 (Version 4)
Quarter: 2013Q4

REPORT INFORMATION
  Report Type: Report from Study
  Country: CA (occurrence: CA)
  Receive Date: 20131015
  Receipt Date: 20131119
  Transmission Date: 20140711
  Serious: Yes (Other)
  Sender: FDA-Public Use
  Company Number: CA-JNJFOC-20131005789

PATIENT
  Age: 23 Year
  Sex: Male
  Weight: 134.6 kg

DRUGS (18)
  1. REMICADE [Suspect]
     Indication: COLITIS ULCERATIVE
     Route: 042
     Dates: start: 20130208
  2. REMICADE [Suspect]
     Indication: COLITIS ULCERATIVE
     Route: 042
     Dates: start: 201006
  3. LOPERAMIDE [Concomitant]
     Route: 065
  4. ELAVIL [Concomitant]
     Route: 065
  5. AZATHIOPRINE [Concomitant]
     Route: 065
  6. HYDROMORPHONE [Concomitant]
     Route: 065
  7. HYDROMORPH CONTIN [Concomitant]
     Route: 065
  8. OXAZEPAM [Concomitant]
     Route: 065
  9. OMEPRAZOLE [Concomitant]
     Route: 065
  10. RANITIDINE [Concomitant]
     Route: 065
  11. IMIPRAMINE [Concomitant]
     Route: 065
  12. ASACOL [Concomitant]
     Route: 065
  13. GABAPENTIN [Concomitant]
     Route: 065
  14. CALCIUM [Concomitant]
     Route: 065
  15. CYMBALTA [Concomitant]
     Route: 065
  16. IMURAN [Concomitant]
     Route: 065
  17. BUSCOPAN [Concomitant]
     Route: 065
  18. PREDNISONE [Concomitant]
     Route: 065

REACTIONS (3)
  - Gallbladder disorder [Unknown]
  - Abdominal pain [Unknown]
  - Diarrhoea [Unknown]
